FAERS Safety Report 11693318 (Version 2)
Quarter: 2015Q4

REPORT INFORMATION
  Report Type: Spontaneous
  Country: JP (occurrence: JP)
  Receive Date: 20151103
  Receipt Date: 20151216
  Transmission Date: 20160304
  Serious: Yes (Hospitalization)
  Sender: FDA-Public Use
  Company Number: JP-BAYER-2015-449825

PATIENT
  Age: 66 Year
  Sex: Male

DRUGS (1)
  1. BAYASPIRIN [Suspect]
     Active Substance: ASPIRIN
     Indication: MYOCARDIAL INFARCTION
     Dosage: 100 MG, QD
     Route: 048
     Dates: end: 20150203

REACTIONS (8)
  - Contusion [Recovered/Resolved]
  - Anaemia [Recovered/Resolved]
  - Retroperitoneal haematoma [Recovered/Resolved]
  - Extravasation [Recovered/Resolved]
  - Abasia [Recovered/Resolved]
  - Fall [Recovered/Resolved]
  - Abdominal pain lower [Recovered/Resolved]
  - Arterial haemorrhage [Recovered/Resolved]

NARRATIVE: CASE EVENT DATE: 20150202
